FAERS Safety Report 20657195 (Version 1)
Quarter: 2022Q1

REPORT INFORMATION
  Report Type: Spontaneous
  Country: IT (occurrence: IT)
  Receive Date: 20220331
  Receipt Date: 20220331
  Transmission Date: 20220423
  Serious: Yes (Other)
  Sender: FDA-Public Use
  Company Number: IT-SUN PHARMACEUTICAL INDUSTRIES LTD-2022RR-331055

PATIENT
  Age: 20 Year
  Sex: Female

DRUGS (3)
  1. GABAPENTIN [Suspect]
     Active Substance: GABAPENTIN
     Indication: Bipolar disorder
     Dosage: 800 MILLIGRAM, IN TOTAL
     Route: 048
     Dates: start: 20220116, end: 20220116
  2. QUETIAPINE [Suspect]
     Active Substance: QUETIAPINE
     Indication: Bipolar disorder
     Dosage: 1800 MILLIGRAM, IN TOTAL
     Route: 048
     Dates: start: 20220116, end: 20220116
  3. LORAZEPAM [Suspect]
     Active Substance: LORAZEPAM
     Indication: Anxiety
     Dosage: 50 MILLIGRAM, IN TOTAL
     Route: 048
     Dates: start: 20220116, end: 20220116

REACTIONS (5)
  - Sedation [Recovering/Resolving]
  - Drug abuse [Recovering/Resolving]
  - Bradyphrenia [Recovering/Resolving]
  - Oropharyngeal pain [Recovering/Resolving]
  - Bradykinesia [Recovering/Resolving]

NARRATIVE: CASE EVENT DATE: 20220116
